FAERS Safety Report 5919057-1 (Version None)
Quarter: 2008Q3

REPORT INFORMATION
  Report Type: 
  Country: None (occurrence: None)
  Receive Date: 20080909
  Receipt Date: 20061012
  Transmission Date: 20090109
  Serious: Yes (Hospitalization)
  Sender: FDA-Public Use
  Company Number: 163-20785-06090772

PATIENT
  Age: 61 Year
  Sex: Female
  Weight: 70 kg

DRUGS (1)
  1. THALOMID [Suspect]
     Indication: SARCOMA
     Dosage: 200-400MG, DAILY, STARTING 2 WKS POST-OP X12MONTHS, ORAL
     Route: 048
     Dates: start: 20060525, end: 20060614

REACTIONS (7)
  - ALANINE AMINOTRANSFERASE INCREASED [None]
  - ASPARTATE AMINOTRANSFERASE INCREASED [None]
  - BLOOD ALKALINE PHOSPHATASE INCREASED [None]
  - GASTROINTESTINAL INJURY [None]
  - PROCEDURAL COMPLICATION [None]
  - VENOUS INJURY [None]
  - WEIGHT DECREASED [None]
